FAERS Safety Report 10271264 (Version 1)
Quarter: 2014Q1

REPORT INFORMATION
  Report Type: Spontaneous
  Country: US (occurrence: None)
  Receive Date: 20140306
  Receipt Date: 20140306
  Transmission Date: 20141002
  Serious: Yes (Other)
  Sender: FDA-Public Use
  Company Number: 163-21880-13081563

PATIENT
  Age: 80 Year
  Sex: Female
  Weight: 57.61 kg

DRUGS (2)
  1. REVLIMID (LENALIDOMIDE) (5 MILLIGRAM, CAPSULES) [Suspect]
     Indication: PLASMA CELL MYELOMA
     Route: 048
     Dates: start: 200910
  2. LEVOTHYROXINE (LEVOTHYROXINE) (UNKNOWN) [Concomitant]

REACTIONS (2)
  - Hip fracture [None]
  - Fall [None]
